FAERS Safety Report 16625081 (Version 1)
Quarter: 2019Q3

REPORT INFORMATION
  Report Type: Spontaneous
  Country: US (occurrence: US)
  Receive Date: 20190724
  Receipt Date: 20190724
  Transmission Date: 20191004
  Serious: Yes (Disabling)
  Sender: FDA-Public Use
  Company Number: None

PATIENT
  Age: 59 Year
  Sex: Female
  Weight: 65.7 kg

DRUGS (1)
  1. CIMZIA [Suspect]
     Active Substance: CERTOLIZUMAB PEGOL
     Indication: ANKYLOSING SPONDYLITIS
     Dosage: ?          QUANTITY:1 INJECTION(S);OTHER FREQUENCY:EVERY 2 WEEKS;?
     Route: 030
     Dates: start: 20181223, end: 20190609

REACTIONS (13)
  - Myalgia [None]
  - Gait disturbance [None]
  - Attention deficit/hyperactivity disorder [None]
  - Contusion [None]
  - Anxiety [None]
  - Disturbance in attention [None]
  - Memory impairment [None]
  - Scar [None]
  - Poverty of speech [None]
  - Confusional state [None]
  - Haemorrhage [None]
  - Haematoma [None]
  - Peripheral swelling [None]

NARRATIVE: CASE EVENT DATE: 20190201
